FAERS Safety Report 7078743-3 (Version None)
Quarter: 2010Q4

REPORT INFORMATION
  Report Type: 
  Country: None (occurrence: None)
  Receive Date: 20101102
  Receipt Date: 20101021
  Transmission Date: 20110411
  Serious: Yes (Other)
  Sender: FDA-Public Use
  Company Number: FI-PFIZER INC-2010133710

PATIENT
  Age: 32 Year
  Sex: Male

DRUGS (6)
  1. LYRICA [Suspect]
     Dosage: 75 MG, 2X/DAY
     Dates: start: 20100825, end: 20101001
  2. DIAPAM [Concomitant]
     Dosage: 60MG DAILY
     Dates: start: 20100525
  3. ATARAX [Concomitant]
     Dosage: 100 MG ONCE DAILY
     Dates: start: 20100525
  4. BURANA [Concomitant]
     Dosage: 800 MG THREE TIMES DAILY
     Dates: start: 20100525
  5. SILDENAFIL CITRATE [Concomitant]
     Dosage: 50 MG, AS NEEDED
     Dates: start: 20100525
  6. PANADOL [Concomitant]
     Dosage: 1G 1-3 TIMES DAILY
     Dates: start: 20100525

REACTIONS (3)
  - DRUG DEPENDENCE [None]
  - DRUG SCREEN POSITIVE [None]
  - VISUAL ACUITY REDUCED [None]
